FAERS Safety Report 11604061 (Version 2)
Quarter: 2015Q4

REPORT INFORMATION
  Report Type: Report from Study
  Country: US (occurrence: US)
  Receive Date: 20151007
  Receipt Date: 20151009
  Transmission Date: 20160304
  Serious: Yes (Other)
  Sender: FDA-Public Use
  Company Number: US-AMGEN-USASL2015103221

PATIENT
  Age: 13 Year
  Sex: Female

DRUGS (3)
  1. METHOTREXATE (METHOTREXATE SODIUM) [Concomitant]
     Active Substance: METHOTREXATE SODIUM
     Dosage: UNK
     Dates: end: 2015
  2. CELEBREX [Concomitant]
     Active Substance: CELECOXIB
     Dosage: 100 MG, BID
  3. ENBREL [Suspect]
     Active Substance: ETANERCEPT
     Indication: JUVENILE IDIOPATHIC ARTHRITIS
     Dosage: 50 MG, QWK
     Route: 058
     Dates: start: 2015

REACTIONS (3)
  - Injection site bruising [Recovering/Resolving]
  - Loss of consciousness [Unknown]
  - Vasculitic rash [Unknown]

NARRATIVE: CASE EVENT DATE: 2015
